FAERS Safety Report 7737563-4 (Version None)
Quarter: 2011Q3

REPORT INFORMATION
  Report Type: 
  Country: None (occurrence: None)
  Receive Date: 20110908
  Receipt Date: 20110905
  Transmission Date: 20111222
  Serious: Yes (Hospitalization)
  Sender: FDA-Public Use
  Company Number: JP-PFIZER INC-2011206383

PATIENT
  Age: 61 Year
  Sex: Male
  Weight: 56.5 kg

DRUGS (2)
  1. ZOMETA [Concomitant]
     Indication: RENAL CELL CARCINOMA
     Dosage: 3.3 MG, MONTHLY
     Route: 042
  2. TEMSIROLIMUS [Suspect]
     Indication: RENAL CELL CARCINOMA
     Dosage: 25 MG, WEEKLY
     Dates: start: 20110421

REACTIONS (2)
  - BILIARY TRACT DISORDER [None]
  - PNEUMONIA [None]
